FAERS Safety Report 16035342 (Version 1)
Quarter: 2019Q1

REPORT INFORMATION
  Report Type: Spontaneous
  Country: US (occurrence: US)
  Receive Date: 20190206
  Receipt Date: 20190206
  Transmission Date: 20190418
  Serious: Yes (Other)
  Sender: FDA-Public Use
  Company Number: None

PATIENT
  Age: 82 Year
  Sex: Female
  Weight: 60.78 kg

DRUGS (11)
  1. BREO ELLIPTA [Concomitant]
     Active Substance: FLUTICASONE FUROATE\VILANTEROL TRIFENATATE
  2. ALLEGRA 24HR [Concomitant]
  3. IPRATROPIUM/ALBUTEROL 0.5MG [Suspect]
     Active Substance: ALBUTEROL\IPRATROPIUM
     Indication: CHRONIC OBSTRUCTIVE PULMONARY DISEASE
     Dosage: ?          QUANTITY:0.5/2.5 MG;?
     Route: 055
     Dates: start: 20181015, end: 20181015
  4. IPRATROPIUM/ALBUTEROL 0.5MG [Suspect]
     Active Substance: ALBUTEROL\IPRATROPIUM
     Indication: ASTHMA
     Dosage: ?          QUANTITY:0.5/2.5 MG;?
     Route: 055
     Dates: start: 20181015, end: 20181015
  5. PROAIR HFA [Concomitant]
     Active Substance: ALBUTEROL SULFATE
  6. FLUTICASONE. [Concomitant]
     Active Substance: FLUTICASONE
  7. MONTELUKAST [Concomitant]
     Active Substance: MONTELUKAST SODIUM
  8. DIPHENDRAMINE [Concomitant]
  9. HCTZ [Concomitant]
     Active Substance: HYDROCHLOROTHIAZIDE
  10. ESTATE [Concomitant]
  11. ATORVASTATIN [Concomitant]
     Active Substance: ATORVASTATIN

REACTIONS (3)
  - Tremor [None]
  - Dyspnoea [None]
  - Condition aggravated [None]

NARRATIVE: CASE EVENT DATE: 20181015
